FAERS Safety Report 11755552 (Version 1)
Quarter: 2015Q4

REPORT INFORMATION
  Report Type: Spontaneous
  Country: US (occurrence: US)
  Receive Date: 20151119
  Receipt Date: 20151119
  Transmission Date: 20160304
  Serious: Yes (Hospitalization)
  Sender: FDA-Public Use
  Company Number: US-AMNEAL PHARMACEUTICALS-2015AMN00189

PATIENT
  Age: 35 Year
  Sex: Female
  Weight: 122.45 kg

DRUGS (13)
  1. GABAPENTIN. [Suspect]
     Active Substance: GABAPENTIN
     Indication: NEURALGIA
     Dosage: 300 MG, 3X/DAY
     Route: 048
     Dates: start: 20150904
  2. METFORMIN [Concomitant]
     Active Substance: METFORMIN HYDROCHLORIDE
     Indication: POLYCYSTIC OVARIES
     Dosage: 500 MG, 1X/DAY
     Route: 048
     Dates: start: 20151006
  3. BUDESONIDE. [Concomitant]
     Active Substance: BUDESONIDE
     Dosage: 2 CAPS/DAY IN AM
     Dates: start: 201510
  4. BUDESONIDE. [Concomitant]
     Active Substance: BUDESONIDE
     Indication: ENTERITIS
     Dosage: 3 CAPS/DAY IN AM
     Route: 048
     Dates: start: 20150928, end: 201510
  5. PROTONIX [Suspect]
     Active Substance: PANTOPRAZOLE SODIUM
     Indication: HAEMATEMESIS
     Dosage: UNK
     Route: 042
     Dates: start: 20150918, end: 20150921
  6. PANTOPRAZOLE (WYETH) [Suspect]
     Active Substance: PANTOPRAZOLE SODIUM
     Indication: GASTROOESOPHAGEAL REFLUX DISEASE
     Dosage: 40 MG, 2X/DAY
     Route: 048
     Dates: start: 20150922
  7. LORATADINE. [Concomitant]
     Active Substance: LORATADINE
     Indication: HYPERSENSITIVITY
     Dosage: 10 MG, 1X/MONTH
     Dates: start: 2005
  8. MULTIVITAMIN [Concomitant]
     Active Substance: VITAMINS
     Dosage: 1 TAB DAILY
  9. EVENING PRIMROSE OIL [Concomitant]
     Active Substance: EVENING PRIMROSE OIL
     Indication: BREAST PAIN
     Dosage: 1000 MG, 1X/DAY, AT NIGHT
     Dates: start: 2013
  10. PANTOPRAZOLE (WYETH) [Suspect]
     Active Substance: PANTOPRAZOLE SODIUM
     Indication: IRRITABLE BOWEL SYNDROME
     Dosage: UNK
  11. CARAFATE [Concomitant]
     Active Substance: SUCRALFATE
     Dosage: 10 ML, 4X/DAY
     Dates: start: 20150921
  12. EVENING PRIMROSE OIL [Concomitant]
     Active Substance: EVENING PRIMROSE OIL
     Indication: FACTOR V LEIDEN MUTATION
  13. GABAPENTIN. [Suspect]
     Active Substance: GABAPENTIN
     Dosage: 300 MG, 2X/DAY
     Route: 048

REACTIONS (9)
  - Muscle spasms [Recovered/Resolved]
  - Vomiting [Recovered/Resolved]
  - Haematemesis [Recovered/Resolved]
  - Drug screen positive [Unknown]
  - Drug ineffective [Recovered/Resolved]
  - Blood magnesium decreased [Recovered/Resolved]
  - Dehydration [Recovered/Resolved]
  - Disturbance in attention [Recovered/Resolved]
  - Anxiety [Recovered/Resolved]

NARRATIVE: CASE EVENT DATE: 201509
